FAERS Safety Report 9788716 (Version 1)
Quarter: 2013Q4

REPORT INFORMATION
  Report Type: Spontaneous
  Country: US (occurrence: US)
  Receive Date: 20131230
  Receipt Date: 20131230
  Transmission Date: 20140711
  Serious: No
  Sender: FDA-Public Use
  Company Number: US-TEVA-452829USA

PATIENT
  Age: 61 Year
  Sex: Male
  Weight: 90.8 kg

DRUGS (1)
  1. AZILECT [Suspect]
     Indication: PARKINSON^S DISEASE
     Dosage: 1.5 MILLIGRAM DAILY;
     Route: 048
     Dates: start: 20131206

REACTIONS (1)
  - Expired drug administered [Not Recovered/Not Resolved]
